FAERS Safety Report 4498715-2 (Version None)
Quarter: 2004Q3

REPORT INFORMATION
  Report Type: 
  Country: None (occurrence: None)
  Receive Date: 20040927
  Receipt Date: 20040617
  Transmission Date: 20050211
  Serious: No
  Sender: FDA-Public Use
  Company Number: USA040670481

PATIENT
  Age: 3 Year
  Sex: Female

DRUGS (2)
  1. STRATTERA [Suspect]
     Dates: start: 20040615
  2. MULTIVITAMIN [Concomitant]

REACTIONS (1)
  - RETCHING [None]
